FAERS Safety Report 18516978 (Version 2)
Quarter: 2021Q1

REPORT INFORMATION
  Report Type: Spontaneous
  Country: JP (occurrence: JP)
  Receive Date: 20201118
  Receipt Date: 20210129
  Transmission Date: 20210419
  Serious: Yes (Hospitalization)
  Sender: FDA-Public Use
  Company Number: NVSJ2020JP011951

PATIENT
  Age: 49 Year
  Sex: Female

DRUGS (1)
  1. NEORAL [Suspect]
     Active Substance: CYCLOSPORINE
     Indication: CASTLEMAN^S DISEASE
     Dosage: 150 MG, BEFORE BREAKFAST AND DINNER
     Route: 048
     Dates: start: 20201008

REACTIONS (4)
  - Menorrhagia [Unknown]
  - Dizziness [Unknown]
  - Red blood cell count decreased [Unknown]
  - Product use in unapproved indication [Unknown]
